FAERS Safety Report 20880014 (Version 1)
Quarter: 2022Q2

REPORT INFORMATION
  Report Type: Spontaneous
  Country: US (occurrence: US)
  Receive Date: 20220526
  Receipt Date: 20220526
  Transmission Date: 20220721
  Serious: Yes (Death)
  Sender: FDA-Public Use
  Company Number: US-IGSA-BIG0018937

PATIENT
  Sex: Male

DRUGS (15)
  1. GAMUNEX-C [Suspect]
     Active Substance: HUMAN IMMUNOGLOBULIN G
     Indication: Product used for unknown indication
     Dosage: 10 GRAM, Q.M.T.
     Route: 042
     Dates: start: 20201220
  2. ROSUVASTATIN CALCIUM [Concomitant]
     Active Substance: ROSUVASTATIN CALCIUM
  3. ALLOPURINOL [Concomitant]
     Active Substance: ALLOPURINOL
  4. ASPIRIN [Concomitant]
     Active Substance: ASPIRIN
  5. ATIVAN [Concomitant]
     Active Substance: LORAZEPAM
  6. ATORVASTATIN [Concomitant]
     Active Substance: ATORVASTATIN
  7. BALSALAZIDE [Concomitant]
     Active Substance: BALSALAZIDE
  8. FAMOTIDINE [Concomitant]
     Active Substance: FAMOTIDINE
  9. IMODIUM A-D [Concomitant]
     Active Substance: LOPERAMIDE HYDROCHLORIDE
  10. KENALOG [Concomitant]
     Active Substance: TRIAMCINOLONE ACETONIDE
  11. METFORMIN HYDROCHLORIDE [Concomitant]
     Active Substance: METFORMIN HYDROCHLORIDE
  12. VITAMINS [Concomitant]
     Active Substance: VITAMINS
  13. RITUXAN [Concomitant]
     Active Substance: RITUXIMAB
  14. VENCLEXTA [Concomitant]
     Active Substance: VENETOCLAX
  15. VITAMIN D NOS [Concomitant]
     Active Substance: VITAMIN D NOS

REACTIONS (1)
  - Death [Fatal]
